FAERS Safety Report 16946118 (Version 1)
Quarter: 2019Q4

REPORT INFORMATION
  Report Type: Spontaneous
  Country: US (occurrence: US)
  Receive Date: 20191022
  Receipt Date: 20191022
  Transmission Date: 20200122
  Serious: Yes (Other)
  Sender: FDA-Public Use
  Company Number: US-PFIZER INC-2019450533

PATIENT
  Age: 38 Year
  Sex: Female
  Weight: 80.59 kg

DRUGS (1)
  1. IBRANCE [Suspect]
     Active Substance: PALBOCICLIB
     Indication: BREAST CANCER
     Dosage: 100 MG, CYCLIC (DAILY FOR 14 DAYS ON, 7 DAYS OFF)
     Route: 048

REACTIONS (4)
  - Neutropenia [Unknown]
  - Abdominal discomfort [Unknown]
  - Malaise [Unknown]
  - Nasopharyngitis [Unknown]
